FAERS Safety Report 6962264-X (Version None)
Quarter: 2010Q3

REPORT INFORMATION
  Report Type: 
  Country: None (occurrence: None)
  Receive Date: 20100901
  Receipt Date: 20100901
  Transmission Date: 20110219
  Serious: Yes (Other)
  Sender: FDA-Public Use
  Company Number: None

PATIENT
  Age: 30 Year
  Sex: Female
  Weight: 67.1324 kg

DRUGS (1)
  1. SPRINTEC [Suspect]
     Indication: CONTRACEPTION
     Dosage: 1 PILL DAILY PO
     Route: 048
     Dates: start: 20100822, end: 20100831

REACTIONS (5)
  - DEPRESSION [None]
  - HEADACHE [None]
  - LETHARGY [None]
  - MOOD ALTERED [None]
  - WEIGHT INCREASED [None]
